FAERS Safety Report 8903445 (Version 1)
Quarter: 2012Q4

REPORT INFORMATION
  Report Type: 
  Country: SE (occurrence: SE)
  Receive Date: 20121112
  Receipt Date: 20121112
  Transmission Date: 20130627
  Serious: Yes (Other)
  Sender: FDA-Public Use
  Company Number: SE-ASTRAZENECA-2012SE83745

PATIENT
  Sex: Male

DRUGS (12)
  1. ATENOLOL [Suspect]
     Indication: HYPERTENSION
     Route: 048
  2. ATENOLOL [Suspect]
     Indication: HYPERTENSION
     Dosage: DOSE DOUBLED
     Route: 048
  3. FELODIPINE [Suspect]
     Indication: HYPERTENSION
     Route: 048
  4. FELODIPINE [Suspect]
     Indication: HYPERTENSION
     Dosage: DOSE DOUBLED
     Route: 048
  5. FELODIPINE [Suspect]
     Indication: HYPERTENSION
     Dosage: DOSE LOWERED
     Route: 048
  6. RAPAMUNE [Suspect]
     Route: 065
  7. PREDNISOLON [Concomitant]
  8. PREDNISOLON [Concomitant]
  9. PREDNISOLON [Concomitant]
  10. LYRICA [Concomitant]
     Indication: ANXIETY
  11. LYRICA [Concomitant]
     Indication: ANXIETY
  12. STESOLID [Concomitant]
     Dosage: 5 mg x 2, 1-2 DAILY

REACTIONS (9)
  - Hypertension [Unknown]
  - Oedema peripheral [Unknown]
  - Renal impairment [Unknown]
  - Dermatitis acneiform [Unknown]
  - Anxiety [Unknown]
  - Drug level increased [Unknown]
  - Flatulence [Unknown]
  - Drug ineffective [Unknown]
  - Drug dependence [None]
